FAERS Safety Report 23122006 (Version 1)
Quarter: 2023Q4

REPORT INFORMATION
  Report Type: Spontaneous
  Country: CA (occurrence: CA)
  Receive Date: 20231030
  Receipt Date: 20231030
  Transmission Date: 20240109
  Serious: Yes (Other)
  Sender: FDA-Public Use
  Company Number: CA-TAKEDA-2023TUS102691

PATIENT
  Age: 26 Year
  Sex: Male

DRUGS (3)
  1. BRIGATINIB [Suspect]
     Active Substance: BRIGATINIB
     Indication: Anaplastic lymphoma kinase gene mutation
     Dosage: UNK
     Route: 065
  2. BRIGATINIB [Suspect]
     Active Substance: BRIGATINIB
     Dosage: 90 MILLIGRAM
     Route: 065
  3. BRIGATINIB [Suspect]
     Active Substance: BRIGATINIB
     Dosage: 120 MILLIGRAM
     Route: 065

REACTIONS (3)
  - Metastases to central nervous system [Unknown]
  - Cough [Unknown]
  - Vomiting [Unknown]
